FAERS Safety Report 8344660-1 (Version None)
Quarter: 2012Q2

REPORT INFORMATION
  Report Type: 
  Country: None (occurrence: None)
  Receive Date: 20120508
  Receipt Date: 20120426
  Transmission Date: 20120825
  Serious: Yes (Hospitalization)
  Sender: FDA-Public Use
  Company Number: US-ROCHE-1066389

PATIENT
  Sex: Female
  Weight: 109 kg

DRUGS (6)
  1. LISINOPRIL [Concomitant]
     Dates: start: 19910101
  2. COPEGUS [Suspect]
     Indication: HEPATITIS C
     Dates: start: 20110825, end: 20111107
  3. BLINDED ALISPORIVIR [Suspect]
     Indication: HEPATITIS C
     Dates: start: 20110825, end: 20111107
  4. PEGASYS [Suspect]
     Indication: HEPATITIS C
     Dates: start: 20110825, end: 20111101
  5. CELEXA [Concomitant]
     Dates: start: 20111020
  6. PHENERGAN [Concomitant]
     Dates: start: 20110915

REACTIONS (3)
  - CHRONIC OBSTRUCTIVE PULMONARY DISEASE [None]
  - HYPERTENSION [None]
  - PNEUMONIA [None]
